FAERS Safety Report 7571682 (Version 2)
Quarter: 2013Q3

REPORT INFORMATION
  Report Type: Spontaneous
  Country: FR (occurrence: FR)
  Receive Date: 20100902
  Receipt Date: 20130903
  Transmission Date: 20140515
  Serious: Yes (Death, Hospitalization, Other)
  Sender: FDA-Public Use
  Company Number: FR-MERCK-1008FRA00091

PATIENT
  Sex: Female
  Weight: 43 kg

DRUGS (1)
  1. JANUVIA [Suspect]
     Indication: TYPE 2 DIABETES MELLITUS
     Dosage: 100 MG, QD
     Route: 048
     Dates: start: 20100315, end: 20100502

REACTIONS (3)
  - Post procedural complication [Fatal]
  - Femoral neck fracture [Recovered/Resolved]
  - Fall [Fatal]
